FAERS Safety Report 6688902-7 (Version None)
Quarter: 2010Q2

REPORT INFORMATION
  Report Type: 
  Country: None (occurrence: None)
  Receive Date: 20100420
  Receipt Date: 20100409
  Transmission Date: 20101027
  Serious: Yes (Hospitalization)
  Sender: FDA-Public Use
  Company Number: IT-BAXTER-2010BH009634

PATIENT
  Age: 69 Year
  Sex: Male

DRUGS (9)
  1. ENDOXAN BAXTER [Suspect]
     Indication: HIGH GRADE B-CELL LYMPHOMA BURKITT-LIKE LYMPHOMA RECURRENT
     Route: 042
     Dates: start: 20091021, end: 20100219
  2. DOXORUBICIN HCL [Suspect]
     Indication: HIGH GRADE B-CELL LYMPHOMA BURKITT-LIKE LYMPHOMA RECURRENT
     Route: 042
     Dates: start: 20091021, end: 20100219
  3. VINCRISTINE SULFATE [Suspect]
     Indication: HIGH GRADE B-CELL LYMPHOMA BURKITT-LIKE LYMPHOMA RECURRENT
     Route: 042
     Dates: start: 20091021, end: 20100219
  4. METHYLPREDNISOLONE [Suspect]
     Indication: HIGH GRADE B-CELL LYMPHOMA BURKITT-LIKE LYMPHOMA RECURRENT
     Route: 042
     Dates: start: 20091021, end: 20100219
  5. DELTACORTENE [Suspect]
     Indication: HIGH GRADE B-CELL LYMPHOMA BURKITT-LIKE LYMPHOMA RECURRENT
     Route: 048
     Dates: start: 20091021, end: 20100219
  6. ALLOPURINOL [Concomitant]
     Indication: DRUG USE FOR UNKNOWN INDICATION
     Route: 048
  7. ZOFRAN [Concomitant]
     Indication: DRUG USE FOR UNKNOWN INDICATION
     Route: 042
     Dates: start: 20091021, end: 20100219
  8. SELEPARINA [Concomitant]
     Indication: DRUG USE FOR UNKNOWN INDICATION
     Route: 058
  9. LEVOXACIN [Concomitant]
     Indication: DRUG USE FOR UNKNOWN INDICATION
     Route: 048

REACTIONS (2)
  - GASTROENTERITIS [None]
  - NEUTROPENIA [None]
